FAERS Safety Report 9284566 (Version 1)
Quarter: 2013Q2

REPORT INFORMATION
  Report Type: Spontaneous
  Country: IT (occurrence: IT)
  Receive Date: 20130511
  Receipt Date: 20130511
  Transmission Date: 20140414
  Serious: Yes (Life-Threatening)
  Sender: FDA-Public Use
  Company Number: IT-TEVA-403586ISR

PATIENT
  Age: 55 Year
  Sex: Female

DRUGS (5)
  1. PACLITAXEL TEVA [Suspect]
     Indication: BREAST CANCER
     Dosage: 146 MG CYCLICAL
     Route: 042
     Dates: start: 20130417, end: 20130424
  2. ONDANSETRON KABI [Concomitant]
     Indication: VOMITING
     Dosage: 8 MG
     Route: 042
     Dates: start: 20130417, end: 20130424
  3. SOLU-CORTEF [Concomitant]
     Dosage: 250 MG
     Route: 042
     Dates: start: 20130417, end: 20130424
  4. TRIMETON [Concomitant]
     Dosage: 10 MG
     Route: 042
     Dates: start: 20130417, end: 20130424
  5. ZANTAC [Concomitant]
     Dosage: 50 MG
     Route: 042
     Dates: start: 20130417, end: 20130424

REACTIONS (2)
  - Dyspnoea [Recovered/Resolved]
  - Cough [Recovered/Resolved]
